FAERS Safety Report 8463777-4 (Version None)
Quarter: 2012Q2

REPORT INFORMATION
  Report Type: 
  Country: None (occurrence: None)
  Receive Date: 20120625
  Receipt Date: 20120611
  Transmission Date: 20120825
  Serious: No
  Sender: FDA-Public Use
  Company Number: US-ASTRAZENECA-2012SE38965

PATIENT
  Age: 67 Year
  Sex: Male
  Weight: 70.3 kg

DRUGS (1)
  1. TOPROL-XL [Suspect]
     Indication: HYPERTENSION
     Route: 048
     Dates: start: 20050101

REACTIONS (6)
  - HEART RATE INCREASED [None]
  - MALAISE [None]
  - DRUG DOSE OMISSION [None]
  - ATRIAL FIBRILLATION [None]
  - TENSION [None]
  - HEART RATE DECREASED [None]
